FAERS Safety Report 4831374-5 (Version None)
Quarter: 2005Q4

REPORT INFORMATION
  Report Type: 
  Country: None (occurrence: None)
  Receive Date: 20051118
  Receipt Date: 20051115
  Transmission Date: 20060501
  Serious: Yes (Other)
  Sender: FDA-Public Use
  Company Number: US-GLAXOSMITHKLINE-A0582430A

PATIENT
  Age: 61 Year
  Sex: Female

DRUGS (10)
  1. AVANDIA [Suspect]
     Route: 048
     Dates: end: 20051001
  2. FOSAMAX [Concomitant]
  3. DIGITEK [Concomitant]
  4. PROPAFENONE HCL [Concomitant]
  5. ALLERGY MEDICATION [Concomitant]
  6. ALBUTEROL [Concomitant]
  7. SLEEPING PILL [Concomitant]
  8. MULTI-VITAMIN [Concomitant]
  9. ASCORBIC ACID [Concomitant]
  10. CALCIUM GLUCONATE [Concomitant]

REACTIONS (3)
  - DEPRESSION [None]
  - FATIGUE [None]
  - LIVER FUNCTION TEST ABNORMAL [None]
